FAERS Safety Report 24235199 (Version 1)
Quarter: 2024Q3

REPORT INFORMATION
  Report Type: Spontaneous
  Country: US (occurrence: US)
  Receive Date: 20240821
  Receipt Date: 20240821
  Transmission Date: 20241016
  Serious: No
  Sender: BIOMARIN
  Company Number: US-SA-SAC20240813000462

PATIENT

DRUGS (1)
  1. LARONIDASE [Suspect]
     Active Substance: LARONIDASE
     Indication: Mucopolysaccharidosis I
     Dosage: 58 (UNITS UNSPECIFIED), QW
     Route: 042
     Dates: start: 200501

REACTIONS (3)
  - Medical device site scab [Unknown]
  - Pain [Unknown]
  - Tooth extraction [Unknown]

NARRATIVE: CASE EVENT DATE: 20240101
